FAERS Safety Report 19066591 (Version 2)
Quarter: 2021Q3

REPORT INFORMATION
  Report Type: Spontaneous
  Country: US (occurrence: US)
  Receive Date: 20210328
  Receipt Date: 20210706
  Transmission Date: 20211014
  Serious: Yes (Life-Threatening, Hospitalization)
  Sender: FDA-Public Use
  Company Number: US-TEVA-2021-US-1893710

PATIENT
  Age: 55 Year
  Sex: Female

DRUGS (3)
  1. PROPRANOLOL [Suspect]
     Active Substance: PROPRANOLOL HYDROCHLORIDE
     Indication: BASEDOW^S DISEASE
     Dosage: 320 MILLIGRAM DAILY;
     Route: 065
  2. DEXAMETHASONE. [Concomitant]
     Active Substance: DEXAMETHASONE
     Indication: BASEDOW^S DISEASE
     Dosage: HIGH DOSE
     Route: 065
  3. METHIMAZOLE. [Concomitant]
     Active Substance: METHIMAZOLE
     Indication: BASEDOW^S DISEASE
     Route: 065

REACTIONS (13)
  - Metabolic acidosis [Unknown]
  - Cardiac arrest [Recovered/Resolved]
  - Unresponsive to stimuli [Recovered/Resolved]
  - Hyperkalaemia [Unknown]
  - Ventricular dysfunction [Recovered/Resolved]
  - Toxicity to various agents [Unknown]
  - Ventricular fibrillation [Recovered/Resolved]
  - Pulse absent [Recovered/Resolved]
  - Hypokinesia [Unknown]
  - Renal injury [Unknown]
  - Bradyarrhythmia [Recovered/Resolved]
  - Overdose [Unknown]
  - Hepatocellular injury [Unknown]
